FAERS Safety Report 7610912-3 (Version None)
Quarter: 2011Q3

REPORT INFORMATION
  Report Type: 
  Country: None (occurrence: None)
  Receive Date: 20110715
  Receipt Date: 20110713
  Transmission Date: 20111222
  Serious: Yes (Death, Hospitalization, Other)
  Sender: FDA-Public Use
  Company Number: FR-BRISTOL-MYERS SQUIBB COMPANY-15811326

PATIENT
  Age: 51 Year
  Sex: Female
  Weight: 78 kg

DRUGS (1)
  1. IPILIMUMAB [Suspect]
     Indication: MALIGNANT MELANOMA
     Dosage: 10FEB,13MAR,01APR,AND 22APR2011
     Route: 042
     Dates: start: 20110210, end: 20110422

REACTIONS (6)
  - COLITIS [None]
  - RENAL FAILURE ACUTE [None]
  - NEUROPATHY PERIPHERAL [None]
  - DEATH [None]
  - DIARRHOEA [None]
  - DEHYDRATION [None]
